FAERS Safety Report 18667067 (Version 12)
Quarter: 2025Q2

REPORT INFORMATION
  Report Type: Spontaneous
  Country: FR (occurrence: FR)
  Receive Date: 20201228
  Receipt Date: 20250508
  Transmission Date: 20250716
  Serious: Yes (Death, Life-Threatening, Hospitalization, Other)
  Sender: AUROBINDO
  Company Number: FR-ETHYPHARM-201701008

PATIENT
  Age: 34 Year
  Sex: Male
  Weight: 79 kg

DRUGS (52)
  1. MIANSERIN HYDROCHLORIDE [Suspect]
     Active Substance: MIANSERIN HYDROCHLORIDE
     Indication: Back pain
     Route: 048
     Dates: start: 2016, end: 2016
  2. MIANSERIN HYDROCHLORIDE [Suspect]
     Active Substance: MIANSERIN HYDROCHLORIDE
     Indication: Psychiatric symptom
  3. MIANSERIN HYDROCHLORIDE [Suspect]
     Active Substance: MIANSERIN HYDROCHLORIDE
     Indication: Depression
  4. MIANSERIN HYDROCHLORIDE [Suspect]
     Active Substance: MIANSERIN HYDROCHLORIDE
     Indication: Bipolar disorder
  5. OXAZEPAM [Suspect]
     Active Substance: OXAZEPAM
     Indication: Product used for unknown indication
     Route: 065
  6. ACETAMINOPHEN [Interacting]
     Active Substance: ACETAMINOPHEN
     Indication: Back pain
     Route: 065
     Dates: start: 2016, end: 2016
  7. PAROXETINE [Suspect]
     Active Substance: PAROXETINE
     Indication: Back pain
     Route: 048
     Dates: start: 20160829, end: 2016
  8. ACETAMINOPHEN\TRAMADOL [Suspect]
     Active Substance: ACETAMINOPHEN\TRAMADOL
     Indication: Product used for unknown indication
     Route: 065
  9. TRAMADOL [Interacting]
     Active Substance: TRAMADOL
     Indication: Back pain
     Route: 065
     Dates: start: 2016
  10. ZOPICLONE [Suspect]
     Active Substance: ZOPICLONE
     Indication: Depression
     Route: 048
  11. ZOPICLONE [Suspect]
     Active Substance: ZOPICLONE
     Indication: Psychiatric symptom
  12. CODEINE PHOSPHATE\IBUPROFEN [Suspect]
     Active Substance: CODEINE PHOSPHATE\IBUPROFEN
     Indication: Back pain
     Route: 048
     Dates: start: 20160902
  13. CODEINE PHOSPHATE\IBUPROFEN [Suspect]
     Active Substance: CODEINE PHOSPHATE\IBUPROFEN
     Indication: Back pain
     Route: 048
     Dates: start: 20160902
  14. ARTANE [Suspect]
     Active Substance: TRIHEXYPHENIDYL HYDROCHLORIDE
     Indication: Psychiatric symptom
     Route: 048
     Dates: start: 20160810, end: 20160908
  15. ARTANE [Suspect]
     Active Substance: TRIHEXYPHENIDYL HYDROCHLORIDE
     Indication: Depression
  16. THIOCOLCHICOSIDE [Suspect]
     Active Substance: THIOCOLCHICOSIDE
     Indication: Back pain
     Route: 048
     Dates: start: 20160903, end: 2016
  17. CLOTIAZEPAM [Interacting]
     Active Substance: CLOTIAZEPAM
     Indication: Product used for unknown indication
     Route: 048
     Dates: start: 20160830, end: 2016
  18. CLONAZEPAM [Suspect]
     Active Substance: CLONAZEPAM
     Indication: Product used for unknown indication
     Route: 065
  19. PAROXETINE MESYLATE [Suspect]
     Active Substance: PAROXETINE MESYLATE
     Indication: Back pain
     Route: 048
     Dates: start: 20160817, end: 20160908
  20. FENTANYL [Suspect]
     Active Substance: FENTANYL
     Indication: Back pain
     Route: 062
  21. FENTANYL [Interacting]
     Active Substance: FENTANYL
     Indication: Back pain
     Route: 062
     Dates: start: 20160929, end: 2016
  22. IBUPROFEN [Suspect]
     Active Substance: IBUPROFEN
     Indication: Back pain
     Route: 048
     Dates: start: 2016, end: 2016
  23. KETAMINE [Suspect]
     Active Substance: KETAMINE
     Indication: Back pain
     Route: 065
     Dates: start: 2016, end: 2016
  24. PRAZEPAM [Interacting]
     Active Substance: PRAZEPAM
     Indication: Product used for unknown indication
     Route: 048
     Dates: start: 20160902, end: 2016
  25. NIFUROXAZIDE [Suspect]
     Active Substance: NIFUROXAZIDE
     Indication: Product used for unknown indication
     Route: 048
     Dates: start: 2016, end: 2016
  26. OXYCONTIN [Interacting]
     Active Substance: OXYCODONE HYDROCHLORIDE
     Indication: Product used for unknown indication
     Route: 065
  27. ACETAMINOPHEN\CODEINE PHOSPHATE [Suspect]
     Active Substance: ACETAMINOPHEN\CODEINE PHOSPHATE
     Indication: Product used for unknown indication
     Route: 048
     Dates: start: 2016, end: 2016
  28. SKENAN [Interacting]
     Active Substance: MORPHINE SULFATE
     Indication: Back pain
     Dosage: 1 DOSAGE FORM, ONCE A DAY
     Route: 048
     Dates: start: 201606, end: 2016
  29. SKENAN [Interacting]
     Active Substance: MORPHINE SULFATE
     Indication: Back pain
     Route: 048
     Dates: start: 201608, end: 20160908
  30. SKENAN [Interacting]
     Active Substance: MORPHINE SULFATE
     Route: 048
     Dates: start: 20160902, end: 20160905
  31. CLOBAZAM [Interacting]
     Active Substance: CLOBAZAM
     Indication: Product used for unknown indication
     Route: 048
     Dates: start: 20160824, end: 20160908
  32. VALIUM [Interacting]
     Active Substance: DIAZEPAM
     Indication: Psychiatric symptom
     Route: 048
     Dates: start: 20160902, end: 20160906
  33. VALIUM [Interacting]
     Active Substance: DIAZEPAM
     Indication: Depression
  34. VALIUM [Interacting]
     Active Substance: DIAZEPAM
     Indication: Bipolar disorder
  35. QUETIAPINE FUMARATE [Suspect]
     Active Substance: QUETIAPINE FUMARATE
     Indication: Product used for unknown indication
     Route: 048
     Dates: start: 20160830, end: 2016
  36. QUETIAPINE FUMARATE [Suspect]
     Active Substance: QUETIAPINE FUMARATE
     Indication: Product used for unknown indication
     Route: 065
  37. ALPRAZOLAM [Suspect]
     Active Substance: ALPRAZOLAM
     Indication: Depression
     Route: 048
  38. ALPRAZOLAM [Suspect]
     Active Substance: ALPRAZOLAM
     Indication: Psychiatric symptom
  39. OXAZEPAM [Suspect]
     Active Substance: OXAZEPAM
     Indication: Depression
     Route: 048
  40. OXAZEPAM [Suspect]
     Active Substance: OXAZEPAM
     Indication: Psychiatric symptom
  41. OXAZEPAM [Suspect]
     Active Substance: OXAZEPAM
     Indication: Bipolar disorder
  42. AMISULPRIDE [Suspect]
     Active Substance: AMISULPRIDE
     Indication: Depression
     Route: 048
  43. AMISULPRIDE [Suspect]
     Active Substance: AMISULPRIDE
     Indication: Psychiatric symptom
  44. AMISULPRIDE [Suspect]
     Active Substance: AMISULPRIDE
     Indication: Schizophrenia
  45. AMISULPRIDE [Suspect]
     Active Substance: AMISULPRIDE
     Indication: Bipolar disorder
  46. NAFRONYL [Interacting]
     Active Substance: NAFRONYL
     Indication: Product used for unknown indication
     Route: 065
  47. MEPHENESIN [Suspect]
     Active Substance: MEPHENESIN
     Indication: Product used for unknown indication
     Route: 065
  48. TEMAZEPAM [Suspect]
     Active Substance: TEMAZEPAM
     Indication: Product used for unknown indication
     Route: 065
  49. NORDAZEPAM [Interacting]
     Active Substance: NORDAZEPAM
     Indication: Product used for unknown indication
     Route: 065
  50. COCAINE [Interacting]
     Active Substance: COCAINE
     Indication: Product used for unknown indication
     Route: 065
  51. TRAMADOL HYDROCHLORIDE [Suspect]
     Active Substance: TRAMADOL HYDROCHLORIDE
     Indication: Back pain
     Route: 048
     Dates: start: 20160903, end: 2016
  52. ETIFOXINE [Suspect]
     Active Substance: ETIFOXINE
     Indication: Product used for unknown indication
     Route: 048
     Dates: start: 20160810, end: 20160908

REACTIONS (48)
  - Aspiration [Fatal]
  - Acute pulmonary oedema [Fatal]
  - Hyperglycaemia [Fatal]
  - Gallbladder injury [Fatal]
  - Pulmonary oedema [Fatal]
  - Respiratory depression [Fatal]
  - Encephalopathy [Fatal]
  - Myocarditis [Fatal]
  - Cardiomyopathy [Fatal]
  - Coma [Fatal]
  - Hepatitis acute [Fatal]
  - Somnolence [Fatal]
  - Myocardial infarction [Fatal]
  - Confusional state [Fatal]
  - Accidental poisoning [Fatal]
  - Overdose [Fatal]
  - Hepatic cytolysis [Fatal]
  - Jaundice [Fatal]
  - Drug screen false positive [Fatal]
  - Hepatic enzyme increased [Fatal]
  - Coronary artery stenosis [Fatal]
  - Cholecystitis infective [Fatal]
  - Pancreas infection [Fatal]
  - Toxicity to various agents [Fatal]
  - Stenosis [Fatal]
  - Labelled drug-drug interaction issue [Fatal]
  - Cardio-respiratory arrest [Fatal]
  - Ketosis [Fatal]
  - Necrosis [Fatal]
  - Cardiac disorder [Fatal]
  - White blood cell count increased [Fatal]
  - Drug abuse [Fatal]
  - Intentional self-injury [Fatal]
  - Synovitis [Unknown]
  - Arrhythmia [Unknown]
  - Hypotension [Unknown]
  - Inflammation [Unknown]
  - Leukocytosis [Unknown]
  - Hypersomnia [Unknown]
  - Monocytosis [Unknown]
  - Product prescribing issue [Unknown]
  - Hepatic failure [Unknown]
  - Hepatobiliary disease [Unknown]
  - Asteatosis [Unknown]
  - Panic attack [Unknown]
  - Thirst [Unknown]
  - Aggression [Unknown]
  - Logorrhoea [Unknown]

NARRATIVE: CASE EVENT DATE: 20160901
